FAERS Safety Report 7219976-2 (Version None)
Quarter: 2011Q1

REPORT INFORMATION
  Report Type: 
  Country: None (occurrence: None)
  Receive Date: 20110111
  Receipt Date: 20101230
  Transmission Date: 20110831
  Serious: Yes (Other)
  Sender: FDA-Public Use
  Company Number: US-ELI_LILLY_AND_COMPANY-US201101000067

PATIENT
  Age: 58 Year
  Sex: Male

DRUGS (4)
  1. CYMBALTA [Suspect]
     Dosage: 30 MG, DAILY (1/D)
  2. TRAZODONE HCL [Concomitant]
  3. LAMOTRIGINE [Concomitant]
  4. PYRIDOSTIGMINE BROMIDE [Concomitant]

REACTIONS (2)
  - CEREBELLAR ATAXIA [None]
  - COELIAC DISEASE [None]
